FAERS Safety Report 13807523 (Version 5)
Quarter: 2018Q4

REPORT INFORMATION
  Report Type: Spontaneous
  Country: US (occurrence: US)
  Receive Date: 20170728
  Receipt Date: 20181121
  Transmission Date: 20190204
  Serious: Yes (Other)
  Sender: FDA-Public Use
  Company Number: US-PFIZER INC-2017324503

PATIENT
  Age: 61 Year
  Sex: Female
  Weight: 45.35 kg

DRUGS (2)
  1. XELJANZ XR [Suspect]
     Active Substance: TOFACITINIB CITRATE
     Indication: RHEUMATOID ARTHRITIS
     Dosage: 11 MG, UNK
  2. XELJANZ XR [Suspect]
     Active Substance: TOFACITINIB CITRATE
     Dosage: 11 MG, 1X/DAY, (SMALL MAUVE TABLET)
     Route: 048
     Dates: start: 201606

REACTIONS (6)
  - Condition aggravated [Unknown]
  - Sepsis [Unknown]
  - Pneumonia [Unknown]
  - Nasopharyngitis [Unknown]
  - Thoracic vertebral fracture [Unknown]
  - Pneumonia aspiration [Unknown]
